FAERS Safety Report 5045682-9 (Version None)
Quarter: 2006Q3

REPORT INFORMATION
  Report Type: 
  Country: None (occurrence: None)
  Receive Date: 20060707
  Receipt Date: 20060314
  Transmission Date: 20061208
  Serious: Yes (Death)
  Sender: FDA-Public Use
  Company Number: US-MERCK-0603USA02469

PATIENT
  Age: 42 Year
  Sex: Male
  Weight: 93 kg

DRUGS (2)
  1. ZOCOR [Suspect]
     Route: 048
     Dates: start: 20030501
  2. RESTORIL [Concomitant]
     Route: 065
     Dates: start: 20031231

REACTIONS (10)
  - ADJUSTMENT DISORDER [None]
  - CHEST PAIN [None]
  - COMPLETED SUICIDE [None]
  - DEPRESSED MOOD [None]
  - GUN SHOT WOUND [None]
  - HEPATIC STEATOSIS [None]
  - INSOMNIA [None]
  - MENTAL IMPAIRMENT [None]
  - RETCHING [None]
  - TRANSAMINASES INCREASED [None]
